FAERS Safety Report 16581833 (Version 1)
Quarter: 2019Q3

REPORT INFORMATION
  Report Type: Spontaneous
  Country: CN (occurrence: CN)
  Receive Date: 20190716
  Receipt Date: 20190716
  Transmission Date: 20191004
  Serious: Yes (Other)
  Sender: FDA-Public Use
  Company Number: CN-BAXTER-2019BAX013604

PATIENT
  Age: 49 Year
  Sex: Female
  Weight: 40 kg

DRUGS (6)
  1. 20% MANNITOL INJECTION [Suspect]
     Active Substance: MANNITOL
     Indication: GLOMERULONEPHRITIS CHRONIC
     Route: 041
     Dates: start: 20190417, end: 20190427
  2. PANTOPRAZOLE SODIUM. [Suspect]
     Active Substance: PANTOPRAZOLE SODIUM
     Indication: PROPHYLAXIS
     Dosage: NS 100 ML + PANTOPRAZOLE SODIUM FOR INJECTION 80 MG IV GTT QD (ONCE DAILY)
     Route: 041
     Dates: start: 20190417, end: 20190426
  3. SODIUM CHLORIDE. [Suspect]
     Active Substance: SODIUM CHLORIDE
     Dosage: SOLVENT FOR PANTOPRAZOLE SODIUM FOR INJECTION.
     Route: 041
     Dates: start: 20190417, end: 20190426
  4. SODIUM CHLORIDE. [Suspect]
     Active Substance: SODIUM CHLORIDE
     Indication: MEDICATION DILUTION
     Dosage: SOLVENT FOR KETOROLAC TROMETHAMINE INJECTION, Q12HR
     Route: 041
     Dates: start: 20190417, end: 20190426
  5. NISONG (KETOROLAC TROMETHAMINE) [Suspect]
     Active Substance: KETOROLAC TROMETHAMINE
     Indication: ANALGESIC THERAPY
     Dosage: Q12HR
     Route: 041
     Dates: start: 20190417, end: 20190426
  6. LOW MOLECULAR WEIGHT HEPARIN CALCIUM [Suspect]
     Active Substance: HEPARIN CALCIUM
     Indication: PROPHYLAXIS
     Dosage: 4100 U
     Route: 058
     Dates: start: 20190417, end: 20190506

REACTIONS (1)
  - Hepatic function abnormal [Recovered/Resolved]

NARRATIVE: CASE EVENT DATE: 20190427
